FAERS Safety Report 20577954 (Version 1)
Quarter: 2022Q1

REPORT INFORMATION
  Report Type: Spontaneous
  Country: US (occurrence: None)
  Receive Date: 20220310
  Receipt Date: 20220310
  Transmission Date: 20220423
  Serious: Yes (Death)
  Sender: FDA-Public Use
  Company Number: None

PATIENT
  Age: 63 Year
  Sex: Female
  Weight: 124 kg

DRUGS (1)
  1. ENOXAPARIN [Suspect]
     Active Substance: ENOXAPARIN
     Indication: Atrial fibrillation
     Dosage: 120 MG  BID SQ?
     Route: 058
     Dates: start: 20220123, end: 20220130

REACTIONS (9)
  - Haemorrhage [None]
  - Anaemia [None]
  - Abdominal wall haematoma [None]
  - Pulseless electrical activity [None]
  - Acidosis [None]
  - Electrolyte imbalance [None]
  - Acute kidney injury [None]
  - Haemodynamic instability [None]
  - Coagulopathy [None]

NARRATIVE: CASE EVENT DATE: 20220131
